FAERS Safety Report 9008702 (Version 1)
Quarter: 2013Q1

REPORT INFORMATION
  Report Type: Spontaneous
  Country: BR (occurrence: BR)
  Receive Date: 20130111
  Receipt Date: 20130111
  Transmission Date: 20140127
  Serious: Yes (Other)
  Sender: FDA-Public Use
  Company Number: BR-PFIZER INC-2012100077

PATIENT
  Age: 56 Year
  Sex: Female

DRUGS (3)
  1. CELEBRA [Suspect]
     Indication: ARTHRALGIA
     Dosage: 200 MG DAILY
     Route: 048
     Dates: start: 20110929
  2. CELEBRA [Suspect]
     Indication: FIBROMYALGIA
  3. LYRICA [Suspect]
     Indication: FIBROMYALGIA
     Dosage: 1 CAPSULE, (75 MG), A DAY
     Route: 048
     Dates: start: 20120420

REACTIONS (2)
  - Cerebrovascular accident [Unknown]
  - Fungal skin infection [Unknown]
